FAERS Safety Report 9299461 (Version 1)
Quarter: 2013Q2

REPORT INFORMATION
  Report Type: Spontaneous
  Country: US (occurrence: US)
  Receive Date: 20130521
  Receipt Date: 20130521
  Transmission Date: 20140414
  Serious: No
  Sender: FDA-Public Use
  Company Number: US-009507513-1305USA002577

PATIENT
  Age: 16 Year
  Sex: Female
  Weight: 82.54 kg

DRUGS (1)
  1. NEXPLANON [Suspect]
     Indication: CONTRACEPTION
     Dosage: 68 MG, UNK
     Route: 059
     Dates: start: 20121116, end: 20130503

REACTIONS (4)
  - Device kink [Unknown]
  - Mood altered [Unknown]
  - Hypomenorrhoea [Unknown]
  - Product quality issue [Unknown]
